FAERS Safety Report 4307705-1 (Version None)
Quarter: 2004Q1

REPORT INFORMATION
  Report Type: 
  Country: None (occurrence: None)
  Receive Date: 20040226
  Receipt Date: 20040216
  Transmission Date: 20041129
  Serious: Yes (Hospitalization, Other)
  Sender: FDA-Public Use
  Company Number: ITWYE583816FEB04

PATIENT
  Age: 86 Year
  Sex: Female

DRUGS (1)
  1. AVOCIN   (PIPERACILLIN) [Suspect]
     Indication: PROPHYLAXIS
     Dosage: 2 G 1 PER 1 DAY INTRAVENOUS
     Route: 042
     Dates: start: 20031106, end: 20031110

REACTIONS (2)
  - PRURITUS [None]
  - RASH ERYTHEMATOUS [None]
